FAERS Safety Report 6057902-2 (Version None)
Quarter: 2009Q1

REPORT INFORMATION
  Report Type: 
  Country: None (occurrence: None)
  Receive Date: 20090126
  Receipt Date: 20071108
  Transmission Date: 20090719
  Serious: Yes (Death)
  Sender: FDA-Public Use
  Company Number: PI-02180

PATIENT
  Age: 1 Day
  Weight: 1 kg

DRUGS (1)
  1. CHLORAPREP [Suspect]
     Indication: PREOPERATIVE CARE
     Dosage: 1.75 ML, ONCE, TOPICAL
     Route: 061
     Dates: start: 20071101

REACTIONS (4)
  - CHEMICAL BURN OF SKIN [None]
  - DEATH NEONATAL [None]
  - ERYTHEMA [None]
  - SKIN IRRITATION [None]
